FAERS Safety Report 4885822-5 (Version None)
Quarter: 2006Q1

REPORT INFORMATION
  Report Type: 
  Country: None (occurrence: None)
  Receive Date: 20060120
  Receipt Date: 20000229
  Transmission Date: 20060701
  Serious: Yes (Hospitalization, Disabling, Other)
  Sender: FDA-Public Use
  Company Number: 00D--10277

PATIENT
  Age: 8 Year
  Sex: Male
  Weight: 16 kg

DRUGS (3)
  1. DESFERAL [Suspect]
     Indication: IRON METABOLISM DISORDER
     Dosage: 1.5 G, QD
     Route: 058
     Dates: start: 19970301
  2. DESFERAL [Suspect]
     Dosage: 2.5 G, QW5
     Route: 058
     Dates: end: 19991001
  3. BLOOD TRANSFUSION, AUXILIARY PRODUCTS [Concomitant]
     Dosage: 15 ML/KG, EVERY 4 TO 5 WEEKS
     Route: 065

REACTIONS (29)
  - ANOREXIA [None]
  - ARRHYTHMIA [None]
  - ASTHENIA [None]
  - BLINDNESS [None]
  - COUGH [None]
  - DEAFNESS NEUROSENSORY [None]
  - ELECTROCARDIOGRAM ABNORMAL [None]
  - ELECTROCARDIOGRAM AMBULATORY ABNORMAL [None]
  - FUNDOSCOPY ABNORMAL [None]
  - GENERAL PHYSICAL HEALTH DETERIORATION [None]
  - HEARING IMPAIRED [None]
  - NAUSEA [None]
  - NEUROTOXICITY [None]
  - OPTIC ATROPHY [None]
  - OPTIC NEUROPATHY [None]
  - OVERDOSE [None]
  - PAIN IN EXTREMITY [None]
  - PAINFUL RESPIRATION [None]
  - PULMONARY FIBROSIS [None]
  - RETINAL DISORDER [None]
  - RETINAL HAEMORRHAGE [None]
  - RETINOPATHY SICKLE CELL [None]
  - SERUM FERRITIN DECREASED [None]
  - SINOATRIAL BLOCK [None]
  - SUPRAVENTRICULAR EXTRASYSTOLES [None]
  - VISUAL ACUITY REDUCED [None]
  - VOMITING [None]
  - WEIGHT DECREASED [None]
  - X-RAY ABNORMAL [None]
